FAERS Safety Report 11469383 (Version 1)
Quarter: 2015Q3

REPORT INFORMATION
  Report Type: Spontaneous
  Country: NL (occurrence: NL)
  Receive Date: 20150908
  Receipt Date: 20150908
  Transmission Date: 20151125
  Serious: Yes (Other)
  Sender: FDA-Public Use
  Company Number: NL-TEVA-561343ISR

PATIENT
  Sex: Female
  Weight: 76 kg

DRUGS (4)
  1. TEARS NATURALE, OOGDRUPPELS [Suspect]
     Active Substance: DEXTRAN\HYPROMELLOSES
     Indication: DRY EYE
  2. OTRIVIN [Suspect]
     Active Substance: XYLOMETAZOLINE
     Route: 045
  3. TEARS NATURALE, OOGDRUPPELS [Suspect]
     Active Substance: DEXTRAN\HYPROMELLOSES
     Indication: HYPERSENSITIVITY
     Dosage: 1 GTT DAILY; IN EACH EYE
     Route: 047
     Dates: start: 201401, end: 20150331
  4. NATRIUMCROMOGLICAAT 20 MG/ML TEVA, NEUSSPRAY [Suspect]
     Active Substance: CROMOLYN SODIUM
     Indication: RHINITIS ALLERGIC
     Dosage: 1 DOSAGE FORMS DAILY; IN EACH NOSTRIL
     Route: 045
     Dates: start: 20150331

REACTIONS (13)
  - Product substitution issue [Unknown]
  - Fatigue [Recovered/Resolved]
  - Oropharyngeal pain [Recovered/Resolved]
  - Retinal detachment [Recovered/Resolved]
  - Drug intolerance [Recovered/Resolved]
  - Cough [Recovered/Resolved]
  - Nasal cavity mass [Recovered/Resolved]
  - Sneezing [Recovered/Resolved]
  - Product formulation issue [None]
  - Chest discomfort [Recovered/Resolved]
  - Hypersensitivity [Recovered/Resolved]
  - Oedema mucosal [Recovered/Resolved]
  - Lymphadenopathy [Recovered/Resolved]

NARRATIVE: CASE EVENT DATE: 2015
